FAERS Safety Report 6138728-8 (Version None)
Quarter: 2009Q1

REPORT INFORMATION
  Report Type: 
  Country: None (occurrence: None)
  Receive Date: 20090331
  Receipt Date: 20090324
  Transmission Date: 20090719
  Serious: Yes (Other)
  Sender: FDA-Public Use
  Company Number: US-JNJFOC-20090206183

PATIENT
  Age: 91 Year
  Sex: Female
  Weight: 44.45 kg

DRUGS (9)
  1. MS MYLANTA GAS MINT [Suspect]
     Route: 048
  2. MS MYLANTA GAS MINT [Suspect]
     Indication: DRUG USE FOR UNKNOWN INDICATION
     Route: 048
  3. OCUVITE LUTEN [Concomitant]
     Indication: MACULAR DEGENERATION
  4. NORVASC [Concomitant]
     Indication: HYPERTENSION
  5. PRILOSEC [Concomitant]
     Indication: GASTROOESOPHAGEAL REFLUX DISEASE
  6. SYNTHROID [Concomitant]
     Indication: THYROID DISORDER
  7. OCUVITE EXTRA [Concomitant]
     Indication: MACULAR DEGENERATION
  8. DARVOCET [Concomitant]
     Indication: ABDOMINAL ADHESIONS
  9. ASPIRIN [Concomitant]
     Indication: PROPHYLAXIS

REACTIONS (2)
  - PRODUCT QUALITY ISSUE [None]
  - TOOTH FRACTURE [None]
